FAERS Safety Report 6927504-1 (Version None)
Quarter: 2010Q3

REPORT INFORMATION
  Report Type: 
  Country: None (occurrence: None)
  Receive Date: 20100812
  Receipt Date: 20100803
  Transmission Date: 20110219
  Serious: Yes (Other)
  Sender: FDA-Public Use
  Company Number: 2010US003146

PATIENT
  Age: 51 Year
  Sex: Male

DRUGS (3)
  1. PROGRAF [Suspect]
     Indication: RENAL TRANSPLANT
  2. MYCOPHENOLATE MOFETIL [Concomitant]
  3. PREDNISONE [Concomitant]

REACTIONS (4)
  - ASPERGILLOMA [None]
  - HYDRONEPHROSIS [None]
  - NEPHROPATHY [None]
  - RENAL FAILURE ACUTE [None]
